FAERS Safety Report 6744621-X (Version None)
Quarter: 2010Q2

REPORT INFORMATION
  Report Type: 
  Country: None (occurrence: None)
  Receive Date: 20100526
  Receipt Date: 20100526
  Transmission Date: 20101027
  Serious: Yes (Life-Threatening, Hospitalization)
  Sender: FDA-Public Use
  Company Number: None

PATIENT
  Age: 23 Day
  Sex: Male
  Weight: 4.785 kg

DRUGS (1)
  1. ERYTHROMYCIN [Suspect]
     Indication: CONJUNCTIVITIS CHLAMYDIAL
     Dosage: 50 MG Q6H PO
     Route: 048
     Dates: start: 20100505, end: 20100519

REACTIONS (1)
  - OBSTRUCTION GASTRIC [None]
